FAERS Safety Report 6293677-X (Version None)
Quarter: 2009Q3

REPORT INFORMATION
  Report Type: 
  Country: None (occurrence: None)
  Receive Date: 20090803
  Receipt Date: 20090727
  Transmission Date: 20100115
  Serious: Yes (Other)
  Sender: FDA-Public Use
  Company Number: US-SP-2009-03200

PATIENT
  Age: 5 Year
  Sex: Male

DRUGS (5)
  1. DAPTACEL [Suspect]
     Indication: IMMUNISATION
     Route: 065
     Dates: start: 20090511
  2. IPOL [Suspect]
     Indication: IMMUNISATION
     Route: 065
     Dates: start: 20090511
  3. M-M-R II [Suspect]
     Indication: IMMUNISATION
     Route: 058
     Dates: start: 20090511
  4. TUBERCULIN NOS [Suspect]
     Indication: TUBERCULIN TEST
     Route: 065
     Dates: start: 20090511
  5. UNKNOWN [Concomitant]

REACTIONS (4)
  - CONVULSION [None]
  - EYE ROLLING [None]
  - LOSS OF CONSCIOUSNESS [None]
  - TREMOR [None]
